APPROVED DRUG PRODUCT: DOBUTAMINE HYDROCHLORIDE
Active Ingredient: DOBUTAMINE HYDROCHLORIDE
Strength: EQ 12.5MG BASE/ML
Dosage Form/Route: INJECTABLE;INJECTION
Application: A074086 | Product #001 | TE Code: AP
Applicant: HOSPIRA INC
Approved: Nov 29, 1993 | RLD: No | RS: Yes | Type: RX